FAERS Safety Report 5968764-3 (Version None)
Quarter: 2008Q4

REPORT INFORMATION
  Report Type: 
  Country: None (occurrence: None)
  Receive Date: 20081125
  Receipt Date: 20081125
  Transmission Date: 20090506
  Serious: Yes (Hospitalization)
  Sender: FDA-Public Use
  Company Number: None

PATIENT
  Age: 50 Year
  Sex: Male

DRUGS (1)
  1. MULTI-VITAMINS [Suspect]
     Indication: HYPERLIPIDAEMIA
     Dosage: 1 TAB EVERY DAY PO
     Route: 048
     Dates: start: 20080111, end: 20080804

REACTIONS (4)
  - ERYTHEMA [None]
  - FLUSHING [None]
  - RASH PRURITIC [None]
  - RASH PUSTULAR [None]
